FAERS Safety Report 8529731-9 (Version None)
Quarter: 2012Q3

REPORT INFORMATION
  Report Type: 
  Country: None (occurrence: None)
  Receive Date: 20120723
  Receipt Date: 20120711
  Transmission Date: 20120928
  Serious: Yes (Other)
  Sender: FDA-Public Use
  Company Number: US-JNJFOC-20120707430

PATIENT
  Sex: Male
  Weight: 72.12 kg

DRUGS (7)
  1. DEPAKOTE [Suspect]
     Indication: BIPOLAR DISORDER
     Dosage: AT NIGHT
     Route: 048
     Dates: start: 20120101
  2. MULTIPLE VITAMIN [Concomitant]
     Indication: MEDICAL DIET
     Route: 048
     Dates: start: 20120101
  3. INVEGA SUSTENNA [Suspect]
     Indication: POST-TRAUMATIC STRESS DISORDER
     Route: 030
     Dates: start: 20120201
  4. VITAMIN D [Concomitant]
     Indication: MEDICAL DIET
     Route: 048
     Dates: start: 20120101
  5. INVEGA SUSTENNA [Suspect]
     Indication: BIPOLAR DISORDER
     Route: 030
     Dates: start: 20120201
  6. DEPAKOTE [Suspect]
     Indication: POST-TRAUMATIC STRESS DISORDER
     Dosage: AT NIGHT
     Route: 048
     Dates: start: 20120101
  7. FISH OIL [Concomitant]
     Indication: MEDICAL DIET
     Route: 048
     Dates: start: 20120101

REACTIONS (6)
  - LIVER DISORDER [None]
  - BLOOD CORTICOTROPHIN INCREASED [None]
  - HALLUCINATION [None]
  - ABDOMINAL DISTENSION [None]
  - ANGER [None]
  - INSOMNIA [None]
